FAERS Safety Report 6659763-7 (Version None)
Quarter: 2010Q1

REPORT INFORMATION
  Report Type: 
  Country: None (occurrence: None)
  Receive Date: 20100330
  Receipt Date: 20100322
  Transmission Date: 20100710
  Serious: Yes (Hospitalization, Other)
  Sender: FDA-Public Use
  Company Number: US-MERCK-0906USA05129

PATIENT
  Age: 68 Year
  Sex: Female

DRUGS (1)
  1. FOSAMAX [Suspect]
     Indication: OSTEOPOROSIS
     Route: 048

REACTIONS (10)
  - ARTHROPATHY [None]
  - BONE DENSITY DECREASED [None]
  - DENTAL PLAQUE [None]
  - DIVERTICULITIS [None]
  - EYE DISORDER [None]
  - GINGIVAL BLEEDING [None]
  - GINGIVITIS [None]
  - NERVOUSNESS [None]
  - OSTEONECROSIS [None]
  - TOOTH DISORDER [None]
